FAERS Safety Report 19419461 (Version 3)
Quarter: 2021Q3

REPORT INFORMATION
  Report Type: Spontaneous
  Country: US (occurrence: US)
  Receive Date: 20210615
  Receipt Date: 20210701
  Transmission Date: 20211014
  Serious: Yes (Life-Threatening, Other)
  Sender: FDA-Public Use
  Company Number: NVSC2021US130940

PATIENT
  Age: 15 Year
  Sex: Male
  Weight: 81 kg

DRUGS (4)
  1. CEFEPIME [Concomitant]
     Active Substance: CEFEPIME HYDROCHLORIDE
     Indication: NEUTROPENIA
     Dosage: 2000 MG, Q8H
     Route: 065
  2. KYMRIAH [Suspect]
     Active Substance: TISAGENLECLEUCEL
     Indication: ACUTE LYMPHOCYTIC LEUKAEMIA
     Route: 042
     Dates: start: 20210525, end: 20210525
  3. CLINDAMYCIN. [Concomitant]
     Active Substance: CLINDAMYCIN
     Indication: NEUTROPENIA
     Dosage: 900 MG, Q8H
     Route: 042
     Dates: start: 20210518
  4. KEPPRA [Concomitant]
     Active Substance: LEVETIRACETAM
     Indication: SEIZURE PROPHYLAXIS
     Dosage: 1500 MG, BID
     Route: 042
     Dates: start: 20210518

REACTIONS (8)
  - Cytokine release syndrome [Recovered/Resolved]
  - Agitation [Unknown]
  - Pyrexia [Recovering/Resolving]
  - Confusional state [Unknown]
  - C-reactive protein increased [Unknown]
  - Hypotension [Unknown]
  - Immune effector cell-associated neurotoxicity syndrome [Recovered/Resolved]
  - Delirium [Unknown]

NARRATIVE: CASE EVENT DATE: 20210526
